FAERS Safety Report 7406318-2 (Version None)
Quarter: 2011Q2

REPORT INFORMATION
  Report Type: 
  Country: None (occurrence: None)
  Receive Date: 20110411
  Receipt Date: 20110404
  Transmission Date: 20111010
  Serious: Yes (Hospitalization)
  Sender: FDA-Public Use
  Company Number: FR-MERCK-1104FRA00027

PATIENT
  Age: 26 Year
  Sex: Female

DRUGS (7)
  1. METOCLOPRAMIDE HYDROCHLORIDE [Concomitant]
     Route: 065
     Dates: start: 20101230
  2. NITROFURANTOIN [Suspect]
     Indication: PROPHYLAXIS URINARY TRACT INFECTION
     Route: 048
     Dates: start: 20101101, end: 20110121
  3. RITUXIMAB [Suspect]
     Route: 042
     Dates: start: 20101230
  4. ONDANSETRON HYDROCHLORIDE [Concomitant]
     Route: 065
     Dates: start: 20101230
  5. EMEND [Suspect]
     Route: 048
     Dates: start: 20101230, end: 20110101
  6. RITUXIMAB [Suspect]
     Route: 042
     Dates: start: 20110119
  7. TAMSULOSIN HYDROCHLORIDE [Concomitant]
     Indication: PROPHYLAXIS URINARY TRACT INFECTION
     Route: 065

REACTIONS (1)
  - CYTOLYTIC HEPATITIS [None]
